FAERS Safety Report 18543510 (Version 1)
Quarter: 2020Q4

REPORT INFORMATION
  Report Type: Report from Study
  Country: DE (occurrence: DE)
  Receive Date: 20201124
  Receipt Date: 20201124
  Transmission Date: 20210114
  Serious: Yes (Other)
  Sender: FDA-Public Use
  Company Number: DE-TAKEDA-DE202011850

PATIENT
  Sex: Male
  Weight: 48.5 kg

DRUGS (6)
  1. IDURSULFASE [Suspect]
     Active Substance: IDURSULFASE
     Dosage: 24 MILLIGRAM, 1X/2WKS
     Route: 042
     Dates: start: 20200310
  2. IDURSULFASE [Suspect]
     Active Substance: IDURSULFASE
     Dosage: 24 MILLIGRAM, 1X/2WKS
     Route: 042
     Dates: start: 2010, end: 2020
  3. IDURSULFASE [Suspect]
     Active Substance: IDURSULFASE
     Indication: MUCOPOLYSACCHARIDOSIS II
     Dosage: 24 MILLIGRAM, 1X/2WKS
     Route: 042
     Dates: start: 2010
  4. IDURSULFASE [Suspect]
     Active Substance: IDURSULFASE
     Dosage: 30 MILLIGRAM, 1X/2WKS
     Route: 042
     Dates: start: 2020
  5. IDURSULFASE [Suspect]
     Active Substance: IDURSULFASE
     Dosage: 30 MILLIGRAM, SINGLE
     Route: 042
     Dates: start: 20201112, end: 20201112
  6. IDURSULFASE [Suspect]
     Active Substance: IDURSULFASE
     Dosage: 30 MILLIGRAM, OTHER (ONE-OFF)
     Route: 042
     Dates: start: 20200825, end: 20200825

REACTIONS (6)
  - Rhinitis [Recovered/Resolved]
  - Nausea [Recovered/Resolved]
  - Ear pain [Recovered/Resolved]
  - Product dose omission issue [Unknown]
  - COVID-19 [Recovered/Resolved]
  - Oropharyngeal pain [Recovered/Resolved]

NARRATIVE: CASE EVENT DATE: 20200317
